FAERS Safety Report 5477784-7 (Version None)
Quarter: 2007Q4

REPORT INFORMATION
  Report Type: 
  Country: None (occurrence: None)
  Receive Date: 20071002
  Receipt Date: 20070919
  Transmission Date: 20080405
  Serious: Yes (Hospitalization)
  Sender: FDA-Public Use
  Company Number: 2007BI019853

PATIENT
  Age: 53 Year
  Sex: Female
  Weight: 70 kg

DRUGS (2)
  1. AVONEX [Suspect]
     Indication: MULTIPLE SCLEROSIS
     Dosage: 30 UG; QW; IM
     Route: 030
  2. DOXAZOSIN MESYLATE [Concomitant]

REACTIONS (6)
  - ANKLE FRACTURE [None]
  - ASTHENIA [None]
  - BALANCE DISORDER [None]
  - HYPERTONIC BLADDER [None]
  - INCONTINENCE [None]
  - MUSCLE SPASTICITY [None]
